FAERS Safety Report 6364481-9 (Version None)
Quarter: 2009Q3

REPORT INFORMATION
  Report Type: 
  Country: None (occurrence: None)
  Receive Date: 20090919
  Receipt Date: 20090722
  Transmission Date: 20100115
  Serious: No
  Sender: FDA-Public Use
  Company Number: US-ABBOTT-09P-163-0587351-00

PATIENT
  Sex: Female
  Weight: 45.4 kg

DRUGS (4)
  1. HUMIRA [Suspect]
     Indication: CROHN'S DISEASE
     Dosage: 4 IN 1 DAY, LOADING DOSE
     Dates: start: 20090707, end: 20090707
  2. HUMIRA [Suspect]
     Dosage: 2 IN 1 DAY
     Dates: start: 20090721, end: 20090721
  3. BC PILLS [Concomitant]
     Indication: DRUG USE FOR UNKNOWN INDICATION
  4. ORTHO TRI-CYCLEN [Concomitant]
     Indication: CONTRACEPTION

REACTIONS (2)
  - PRURITUS [None]
  - RASH PAPULAR [None]
